FAERS Safety Report 8518644-4 (Version None)
Quarter: 2012Q3

REPORT INFORMATION
  Report Type: 
  Country: None (occurrence: None)
  Receive Date: 20120718
  Receipt Date: 20120709
  Transmission Date: 20120928
  Serious: No
  Sender: FDA-Public Use
  Company Number: US-PFIZER INC-2012169407

PATIENT
  Sex: Female

DRUGS (1)
  1. ZYVOX [Suspect]
     Dosage: 600 MG, UNK
     Dates: start: 20120628

REACTIONS (2)
  - PAIN [None]
  - PYREXIA [None]
